FAERS Safety Report 14323485 (Version 2)
Quarter: 2019Q1

REPORT INFORMATION
  Report Type: Spontaneous
  Country: NL (occurrence: NL)
  Receive Date: 20171226
  Receipt Date: 20190115
  Transmission Date: 20190417
  Serious: Yes (Other)
  Sender: FDA-Public Use
  Company Number: NL-AMGEN-NLDSP2017188167

PATIENT
  Age: 54 Year
  Sex: Female
  Weight: 90 kg

DRUGS (2)
  1. REPATHA [Suspect]
     Active Substance: EVOLOCUMAB
     Indication: LOW DENSITY LIPOPROTEIN INCREASED
     Dosage: 140 MG/ML, Q2WK
     Route: 065
     Dates: start: 20170930, end: 20171125
  2. PANTOPRAZOL [Concomitant]
     Active Substance: PANTOPRAZOLE SODIUM
     Dosage: UNK

REACTIONS (4)
  - Retinal vein occlusion [Recovered/Resolved with Sequelae]
  - Retinal exudates [Recovered/Resolved with Sequelae]
  - Retinal infarction [Recovered/Resolved with Sequelae]
  - Embolism [Recovered/Resolved with Sequelae]

NARRATIVE: CASE EVENT DATE: 20171116
